FAERS Safety Report 5747281-X (Version None)
Quarter: 2008Q2

REPORT INFORMATION
  Report Type: 
  Country: None (occurrence: None)
  Receive Date: 20080523
  Receipt Date: 20080516
  Transmission Date: 20081010
  Serious: Yes (Other)
  Sender: FDA-Public Use
  Company Number: GB-RANBAXY-2008RR-15254

PATIENT

DRUGS (1)
  1. LORATADINE 10MG TABLETS [Suspect]
     Indication: SEASONAL ALLERGY
     Dosage: 20 MG, UNK
     Route: 048

REACTIONS (2)
  - AGGRESSION [None]
  - SUICIDAL BEHAVIOUR [None]
